FAERS Safety Report 24143017 (Version 2)
Quarter: 2024Q3

REPORT INFORMATION
  Report Type: Spontaneous
  Country: GB (occurrence: GB)
  Receive Date: 20240726
  Receipt Date: 20240910
  Transmission Date: 20241016
  Serious: Yes (Death, Hospitalization, Other)
  Sender: REGENERON
  Company Number: GB-REGENERON PHARMACEUTICALS, INC.-2024-101753

PATIENT
  Age: 54 Year
  Sex: Male

DRUGS (1)
  1. LIBTAYO [Suspect]
     Active Substance: CEMIPLIMAB-RWLC
     Indication: Squamous cell carcinoma of skin
     Dosage: UNK
     Dates: start: 20240417, end: 20240417

REACTIONS (7)
  - Sepsis [Fatal]
  - Skin toxicity [Fatal]
  - Oral toxicity [Fatal]
  - Toxic epidermal necrolysis [Fatal]
  - Stevens-Johnson syndrome [Fatal]
  - Colitis [Unknown]
  - Hepatitis [Unknown]

NARRATIVE: CASE EVENT DATE: 20240510
